FAERS Safety Report 20229659 (Version 1)
Quarter: 2021Q4

REPORT INFORMATION
  Report Type: Spontaneous
  Country: FR (occurrence: FR)
  Receive Date: 20211226
  Receipt Date: 20211226
  Transmission Date: 20220303
  Serious: Yes (Death)
  Sender: FDA-Public Use
  Company Number: None

PATIENT
  Age: 88 Year
  Sex: Female
  Weight: 60 kg

DRUGS (5)
  1. HALDOL [Suspect]
     Active Substance: HALOPERIDOL
     Indication: Agitation
     Dosage: 20 GOUTTES, UNE SEULE PRISE
     Route: 048
     Dates: start: 20210914, end: 20210914
  2. CYAMEMAZINE [Suspect]
     Active Substance: CYAMEMAZINE
     Indication: Anxiety
     Dosage: 25MG MATIN ET SOIR
     Route: 048
     Dates: end: 20210914
  3. ATARAX [Suspect]
     Active Substance: HYDROXYZINE HYDROCHLORIDE
     Indication: Anxiety
     Route: 048
     Dates: start: 20210913, end: 20210914
  4. FOLIC ACID [Concomitant]
     Active Substance: FOLIC ACID
     Indication: Folate deficiency
     Route: 048
     Dates: end: 20210914
  5. OXAZEPAM [Concomitant]
     Active Substance: OXAZEPAM
     Indication: Anxiety
     Route: 048
     Dates: end: 20210913

REACTIONS (1)
  - Death [Fatal]

NARRATIVE: CASE EVENT DATE: 20210914
